FAERS Safety Report 5669172-5 (Version None)
Quarter: 2008Q1

REPORT INFORMATION
  Report Type: 
  Country: None (occurrence: None)
  Receive Date: 20080317
  Receipt Date: 20080317
  Transmission Date: 20080703
  Serious: Yes (Hospitalization)
  Sender: FDA-Public Use
  Company Number: None

PATIENT
  Sex: Female
  Weight: 85.9 kg

DRUGS (16)
  1. HEPARIN [Suspect]
     Dosage: ARTERIAL LINE INFUSION INTRA-ARTERIAL
     Route: 013
     Dates: start: 20080104, end: 20080104
  2. GENTAMICIN [Concomitant]
  3. SULFAMETHOXAZOLE AND TRIMETHOPRIM [Concomitant]
  4. FLUCONAZOLE [Concomitant]
  5. LEVOFLOXACIN [Concomitant]
  6. METHYLPREDNISOLONE [Concomitant]
  7. VANCOMYCIN [Concomitant]
  8. PANTOPRAZOLE SODIUM [Concomitant]
  9. PHENYTOIN [Concomitant]
  10. VALPROATE SODIUM [Concomitant]
  11. PHENYLEPHRINE [Concomitant]
  12. NOREPINEPHRINE [Concomitant]
  13. DOPAMINE HCL [Concomitant]
  14. TPN [Concomitant]
  15. PROMETHAZINE [Concomitant]
  16. LORAZEPAM [Concomitant]

REACTIONS (3)
  - BLISTER [None]
  - OEDEMA [None]
  - PALLOR [None]
